FAERS Safety Report 20078370 (Version 1)
Quarter: 2021Q4

REPORT INFORMATION
  Report Type: Spontaneous
  Country: US (occurrence: US)
  Receive Date: 20211117
  Receipt Date: 20211117
  Transmission Date: 20220303
  Serious: No
  Sender: FDA-Public Use
  Company Number: US-SA-SAC20211111000336

PATIENT
  Age: 55 Year
  Sex: Male

DRUGS (1)
  1. DUPIXENT [Suspect]
     Active Substance: DUPILUMAB
     Indication: Dermatitis atopic
     Dosage: 300 MG, QOW
     Route: 058
     Dates: end: 202101

REACTIONS (3)
  - Hair growth abnormal [Recovered/Resolved]
  - Urticaria [Not Recovered/Not Resolved]
  - Rebound atopic dermatitis [Unknown]

NARRATIVE: CASE EVENT DATE: 20210101
